FAERS Safety Report 4451603-X (Version None)
Quarter: 2004Q3

REPORT INFORMATION
  Report Type: 
  Country: None (occurrence: None)
  Receive Date: 20040915
  Receipt Date: 20040907
  Transmission Date: 20050211
  Serious: Yes (Other)
  Sender: FDA-Public Use
  Company Number: 2004232294US

PATIENT
  Age: 51 Year
  Sex: Female

DRUGS (4)
  1. OGEN [Suspect]
     Dates: start: 19980101, end: 19980101
  2. PROVERA [Suspect]
     Dates: start: 19920101, end: 19980101
  3. PREMARIN [Suspect]
     Dates: start: 19920101, end: 20000101
  4. ESTROPIPATE [Suspect]
     Dates: start: 19970101, end: 19980101

REACTIONS (1)
  - CEREBROVASCULAR ACCIDENT [None]
